FAERS Safety Report 8371541-X (Version None)
Quarter: 2012Q2

REPORT INFORMATION
  Report Type: 
  Country: None (occurrence: None)
  Receive Date: 20120518
  Receipt Date: 20120509
  Transmission Date: 20120825
  Serious: Yes (Other)
  Sender: FDA-Public Use
  Company Number: FR-FRI-1000030544

PATIENT
  Sex: Female

DRUGS (2)
  1. ESCITALOPRAM [Suspect]
     Dosage: 5 MG
  2. ESCITALOPRAM [Suspect]
     Dosage: 10 MG

REACTIONS (1)
  - HAEMATOCHEZIA [None]
